FAERS Safety Report 4685392-0 (Version None)
Quarter: 2005Q2

REPORT INFORMATION
  Report Type: 
  Country: None (occurrence: None)
  Receive Date: 20050608
  Receipt Date: 20050421
  Transmission Date: 20051028
  Serious: Yes (Other)
  Sender: FDA-Public Use
  Company Number: ZA-GLAXOSMITHKLINE-B0378949A

PATIENT
  Age: 34 Year
  Sex: Female
  Weight: 48 kg

DRUGS (2)
  1. ZYBAN [Suspect]
     Dosage: 150MG TWICE PER DAY
     Route: 048
     Dates: start: 20050305, end: 20050317
  2. ALPRAZOLAM [Concomitant]
     Route: 065

REACTIONS (7)
  - ANXIETY [None]
  - HALLUCINATION [None]
  - INSOMNIA [None]
  - PANIC REACTION [None]
  - PARANOIA [None]
  - PARAPLEGIA [None]
  - RASH [None]
